FAERS Safety Report 6738995-3 (Version None)
Quarter: 2010Q2

REPORT INFORMATION
  Report Type: 
  Country: None (occurrence: None)
  Receive Date: 20100524
  Receipt Date: 20100524
  Transmission Date: 20101027
  Serious: Yes (Hospitalization, Disabling)
  Sender: FDA-Public Use
  Company Number: None

PATIENT
  Age: 15 Year
  Sex: Female
  Weight: 49.8957 kg

DRUGS (1)
  1. PROCHLORPERAZINE 10 MG 10 MG TAB TEVA USA [Suspect]
     Indication: NAUSEA
     Dosage: 1 TAB EVERY 8 HRS PO
     Route: 048
     Dates: start: 20100511, end: 20100515

REACTIONS (3)
  - GAIT DISTURBANCE [None]
  - HEADACHE [None]
  - MUSCLE DISORDER [None]
